FAERS Safety Report 19703618 (Version 4)
Quarter: 2022Q1

REPORT INFORMATION
  Report Type: Report from Study
  Country: CN (occurrence: None)
  Receive Date: 20210816
  Receipt Date: 20220224
  Transmission Date: 20220423
  Serious: Yes (Hospitalization)
  Sender: FDA-Public Use
  Company Number: CN-ROCHE-2885143

PATIENT
  Age: 51 Year
  Sex: Male
  Weight: 66 kg

DRUGS (23)
  1. ATEZOLIZUMAB [Suspect]
     Active Substance: ATEZOLIZUMAB
     Indication: Malignant neoplasm of thymus
     Dosage: ON 28/JUL/2021, HE RECEIVED MOST RECENT DOSE OF ATEZOLIZUMAB PRIOR TO ONSET OF SERIOUS ADVERSE EVENT
     Route: 041
     Dates: start: 20210728
  2. ISOSORBIDE MONONITRATE [Suspect]
     Active Substance: ISOSORBIDE MONONITRATE
     Indication: Product used for unknown indication
     Route: 041
     Dates: start: 20210731, end: 20210731
  3. ISOSORBIDE MONONITRATE [Suspect]
     Active Substance: ISOSORBIDE MONONITRATE
     Route: 041
     Dates: start: 20210731, end: 20210804
  4. RIVAROXABAN [Suspect]
     Active Substance: RIVAROXABAN
     Indication: Product used for unknown indication
     Route: 048
     Dates: start: 2019, end: 20210806
  5. RIVAROXABAN [Suspect]
     Active Substance: RIVAROXABAN
     Route: 048
     Dates: start: 20210807, end: 20210807
  6. RIVAROXABAN [Suspect]
     Active Substance: RIVAROXABAN
     Route: 048
     Dates: start: 20210808
  7. NICORANDIL [Suspect]
     Active Substance: NICORANDIL
     Indication: Product used for unknown indication
     Route: 048
     Dates: start: 20210731, end: 20210731
  8. NICORANDIL [Suspect]
     Active Substance: NICORANDIL
     Route: 048
     Dates: start: 20210802, end: 20210805
  9. ROSUVASTATIN CALCIUM [Suspect]
     Active Substance: ROSUVASTATIN CALCIUM
     Indication: Product used for unknown indication
     Route: 048
     Dates: start: 20210731, end: 20210809
  10. METOPROLOL SUCCINATE [Suspect]
     Active Substance: METOPROLOL SUCCINATE
     Indication: Product used for unknown indication
     Route: 048
     Dates: start: 201911, end: 20210806
  11. ATORVASTATIN CALCIUM [Concomitant]
     Active Substance: ATORVASTATIN CALCIUM
     Dates: start: 201911
  12. ORYZANOL [Concomitant]
     Active Substance: GAMMA ORYZANOL
     Dosage: 2 TABLETS
     Dates: start: 202101
  13. ZOPICLONE [Concomitant]
     Active Substance: ZOPICLONE
     Dates: start: 202101
  14. CANDESARTAN CILEXETIL [Concomitant]
     Active Substance: CANDESARTAN CILEXETIL
     Dates: start: 20210731, end: 20210802
  15. ASPIRIN [Concomitant]
     Active Substance: ASPIRIN
     Dates: start: 20210804, end: 20210805
  16. CLOPIDOGREL [Concomitant]
     Active Substance: CLOPIDOGREL BISULFATE
     Dates: start: 20210804
  17. INDOBUFEN [Concomitant]
     Active Substance: INDOBUFEN
     Dates: start: 20210805, end: 20210807
  18. ESCITALOPRAM OXALATE [Concomitant]
     Active Substance: ESCITALOPRAM OXALATE
     Dates: start: 20210805
  19. IOPAMIDOL [Concomitant]
     Active Substance: IOPAMIDOL
     Dates: start: 20210805, end: 20210805
  20. HEPARIN SODIUM [Concomitant]
     Active Substance: HEPARIN SODIUM
     Dosage: 25000 OTHER
     Dates: start: 20210805, end: 20210805
  21. LIDOCAINE [Concomitant]
     Active Substance: LIDOCAINE
     Dates: start: 20210805, end: 20210805
  22. OLANZAPINE [Concomitant]
     Active Substance: OLANZAPINE
     Dates: start: 20210807, end: 20210809
  23. SPIRONOLACTONE [Concomitant]
     Active Substance: SPIRONOLACTONE
     Dates: start: 20210802, end: 20210805

REACTIONS (1)
  - Cardiac failure [Recovered/Resolved]

NARRATIVE: CASE EVENT DATE: 20210731
